FAERS Safety Report 14940542 (Version 2)
Quarter: 2018Q2

REPORT INFORMATION
  Report Type: Spontaneous
  Country: US (occurrence: US)
  Receive Date: 20180525
  Receipt Date: 20180615
  Transmission Date: 20180711
  Serious: Yes (Death, Hospitalization, Other)
  Sender: FDA-Public Use
  Company Number: US-GLAXOSMITHKLINE-US2018093586

PATIENT
  Sex: Female
  Weight: 89.34 kg

DRUGS (19)
  1. ETODOLAC. [Concomitant]
     Active Substance: ETODOLAC
  2. HYDROXYCHLOROQUINE [Concomitant]
     Active Substance: HYDROXYCHLOROQUINE
  3. SAVELLA [Concomitant]
     Active Substance: MILNACIPRAN HYDROCHLORIDE
  4. OXYCODONE [Concomitant]
     Active Substance: OXYCODONE
  5. VITAMIN B6 [Concomitant]
     Active Substance: PYRIDOXINE HYDROCHLORIDE
  6. VOLTAREN [Concomitant]
     Active Substance: DICLOFENAC SODIUM
  7. ZOLOFT [Concomitant]
     Active Substance: SERTRALINE HYDROCHLORIDE
  8. PREDNISONE. [Concomitant]
     Active Substance: PREDNISONE
  9. CYANOCOBALAMIN. [Concomitant]
     Active Substance: CYANOCOBALAMIN
  10. ESTROGEL [Concomitant]
     Active Substance: ESTRADIOL
  11. ASPIRIN. [Concomitant]
     Active Substance: ASPIRIN
  12. METFORMIN [Concomitant]
     Active Substance: METFORMIN HYDROCHLORIDE
  13. ONDANSETRON [Concomitant]
     Active Substance: ONDANSETRON
  14. TIZANIDINE. [Concomitant]
     Active Substance: TIZANIDINE
  15. BENLYSTA [Suspect]
     Active Substance: BELIMUMAB
     Indication: SYSTEMIC LUPUS ERYTHEMATOSUS
     Dosage: 900 MG, CYC
     Route: 042
     Dates: start: 20170911, end: 20180213
  16. BUTALBITAL [Concomitant]
     Active Substance: BUTALBITAL
  17. OMEPRAZOLE. [Concomitant]
     Active Substance: OMEPRAZOLE
  18. OXTELLAR [Concomitant]
  19. AMITRIPTYLINE [Concomitant]
     Active Substance: AMITRIPTYLINE

REACTIONS (1)
  - Metabolic encephalopathy [Fatal]
